FAERS Safety Report 13431169 (Version 1)
Quarter: 2017Q2

REPORT INFORMATION
  Report Type: Spontaneous
  Country: US (occurrence: US)
  Receive Date: 20170412
  Receipt Date: 20170412
  Transmission Date: 20170830
  Serious: Yes (Disabling)
  Sender: FDA-Public Use
  Company Number: None

PATIENT
  Age: 70 Year
  Sex: Female
  Weight: 47.67 kg

DRUGS (1)
  1. PROLIA [Suspect]
     Active Substance: DENOSUMAB
     Indication: OSTEOPOROSIS
     Dosage: 1 INJECTION  6 MO  2X A YEAR
     Dates: start: 2012, end: 201412

REACTIONS (3)
  - Osteonecrosis of jaw [None]
  - Osteomyelitis [None]
  - Bone loss [None]

NARRATIVE: CASE EVENT DATE: 201412
